FAERS Safety Report 25391624 (Version 4)
Quarter: 2025Q3

REPORT INFORMATION
  Report Type: Report from Study
  Country: CA (occurrence: CA)
  Receive Date: 20250603
  Receipt Date: 20250807
  Transmission Date: 20251020
  Serious: Yes (Hospitalization)
  Sender: ALEXION PHARMACEUTICALS
  Company Number: CA-AstraZeneca-CH-00863892A

PATIENT
  Sex: Male

DRUGS (5)
  1. TEZEPELUMAB [Suspect]
     Active Substance: TEZEPELUMAB
     Indication: Asthma
  2. TEZEPELUMAB [Suspect]
     Active Substance: TEZEPELUMAB
  3. ZENHALE [Concomitant]
     Active Substance: FORMOTEROL FUMARATE\MOMETASONE FUROATE
     Route: 065
  4. NUCALA [Concomitant]
     Active Substance: MEPOLIZUMAB
     Route: 065
  5. PULMICORT TURBUHALER [Concomitant]
     Active Substance: BUDESONIDE
     Route: 065

REACTIONS (6)
  - Dyspepsia [Unknown]
  - Illness [Unknown]
  - Procedural haemorrhage [Unknown]
  - General physical health deterioration [Unknown]
  - Medication error [Unknown]
  - Hospitalisation [Unknown]
